FAERS Safety Report 6037602-5 (Version None)
Quarter: 2009Q1

REPORT INFORMATION
  Report Type: 
  Country: None (occurrence: None)
  Receive Date: 20090114
  Receipt Date: 20090108
  Transmission Date: 20090719
  Serious: Yes (Death, Hospitalization, Other)
  Sender: FDA-Public Use
  Company Number: KR-ROXANE LABORATORIES, INC.-2009-RO-00031RO

PATIENT
  Age: 64 Year
  Sex: Female

DRUGS (7)
  1. CYCLOPHOSPHAMIDE [Suspect]
     Indication: HYPEREOSINOPHILIC SYNDROME
     Dosage: 200MG
     Dates: start: 19900801
  2. CYCLOPHOSPHAMIDE [Suspect]
     Indication: VASCULITIS
     Dosage: 50MG
     Dates: start: 19930501, end: 19990401
  3. AZATHIOPRINE [Suspect]
     Indication: HYPEREOSINOPHILIC SYNDROME
     Dosage: 100MG
     Dates: start: 19990501
  4. AZATHIOPRINE [Suspect]
     Indication: VASCULITIS
     Dosage: 75MG
  5. FLUDARABINE PHOSPHATE [Suspect]
     Indication: ERYTHROLEUKAEMIA
  6. CYTARABINE [Suspect]
     Indication: ERYTHROLEUKAEMIA
  7. IDARUBICIN HCL [Suspect]
     Indication: ERYTHROLEUKAEMIA

REACTIONS (5)
  - CELLULITIS [None]
  - ERYTHROLEUKAEMIA [None]
  - OEDEMA [None]
  - PULMONARY HAEMORRHAGE [None]
  - SEPTIC SHOCK [None]
